FAERS Safety Report 9983485 (Version 5)
Quarter: 2015Q1

REPORT INFORMATION
  Report Type: Report from Study
  Country: US (occurrence: US)
  Receive Date: 20140307
  Receipt Date: 20150119
  Transmission Date: 20150721
  Serious: Yes (Life-Threatening, Hospitalization, Other)
  Sender: FDA-Public Use
  Company Number: US-SA-2014SA016244

PATIENT
  Age: 37 Year
  Sex: Female

DRUGS (9)
  1. REQUIP [Concomitant]
     Active Substance: ROPINIROLE HYDROCHLORIDE
     Indication: RESTLESS LEGS SYNDROME
     Dates: start: 2012
  2. LYRICA [Concomitant]
     Active Substance: PREGABALIN
  3. MILNACIPRAN [Concomitant]
     Active Substance: MILNACIPRAN
     Indication: DEPRESSION
     Dates: start: 2012
  4. MILNACIPRAN [Concomitant]
     Active Substance: MILNACIPRAN
     Indication: ANXIETY
     Dates: start: 2012
  5. AUBAGIO [Suspect]
     Active Substance: TERIFLUNOMIDE
     Indication: MULTIPLE SCLEROSIS
     Route: 048
     Dates: start: 20140109
  6. TOPAMAX [Concomitant]
     Active Substance: TOPIRAMATE
     Indication: HEADACHE
     Dates: start: 2008
  7. AUBAGIO [Suspect]
     Active Substance: TERIFLUNOMIDE
     Indication: MULTIPLE SCLEROSIS
     Route: 048
     Dates: start: 20131213
  8. CLONIDINE. [Concomitant]
     Active Substance: CLONIDINE
     Indication: HYPERTENSION
     Dates: start: 2010
  9. COPAXONE [Concomitant]
     Active Substance: GLATIRAMER ACETATE
     Dates: start: 20130901, end: 20140101

REACTIONS (12)
  - Abdominal discomfort [Not Recovered/Not Resolved]
  - Feeding disorder [Not Recovered/Not Resolved]
  - Seizure [Not Recovered/Not Resolved]
  - Depressed mood [Not Recovered/Not Resolved]
  - Decreased appetite [Not Recovered/Not Resolved]
  - Apparent death [Unknown]
  - Alopecia [Not Recovered/Not Resolved]
  - Headache [Not Recovered/Not Resolved]
  - Pulmonary embolism [Recovering/Resolving]
  - Pain [Not Recovered/Not Resolved]
  - Nausea [Not Recovered/Not Resolved]
  - Injury [Not Recovered/Not Resolved]

NARRATIVE: CASE EVENT DATE: 2014
